FAERS Safety Report 23118313 (Version 2)
Quarter: 2024Q2

REPORT INFORMATION
  Report Type: Report from Study
  Country: CA (occurrence: CA)
  Receive Date: 20231028
  Receipt Date: 20240408
  Transmission Date: 20240715
  Serious: Yes (Death)
  Sender: FDA-Public Use
  Company Number: CA-ABBVIE-5470250

PATIENT
  Age: 74 Year
  Sex: Male

DRUGS (10)
  1. VENETOCLAX [Suspect]
     Active Substance: VENETOCLAX
     Indication: Acute myeloid leukaemia
     Dosage: TIME INTERVAL: 0.09090909 DAYS
     Route: 048
     Dates: start: 20231018, end: 20231018
  2. VENETOCLAX [Suspect]
     Active Substance: VENETOCLAX
     Indication: Acute myeloid leukaemia
     Route: 048
     Dates: start: 20231020, end: 20231024
  3. VENETOCLAX [Suspect]
     Active Substance: VENETOCLAX
     Indication: Acute myeloid leukaemia
     Route: 048
     Dates: start: 20231019, end: 20231019
  4. COVID-19 Vaccine mRNA [Concomitant]
     Indication: COVID-19 prophylaxis
     Dosage: FIFTH DOSE ONE IN ONCE
     Route: 030
  5. COVID-19 Vaccine mRNA [Concomitant]
     Indication: COVID-19 prophylaxis
     Dosage: THIRD DOSE ONE IN ONCE
     Route: 030
  6. COVID-19 Vaccine mRNA [Concomitant]
     Indication: COVID-19 prophylaxis
     Dosage: FOURTH DOSE ONE IN ONCE
     Route: 030
  7. COVID-19 Vaccine mRNA [Concomitant]
     Indication: COVID-19 prophylaxis
     Dosage: FIRST DOSE ONE IN ONCE
     Route: 030
  8. COVID-19 Vaccine mRNA [Concomitant]
     Indication: COVID-19 prophylaxis
     Dosage: SECOND DOSE ONE IN ONCE
     Route: 030
  9. COVID-19 Vaccine mRNA [Concomitant]
     Indication: COVID-19 prophylaxis
     Dosage: SIXTH DOSE ONE IN ONCE
     Route: 030
  10. AZACITIDINE [Suspect]
     Active Substance: AZACITIDINE
     Indication: Product used for unknown indication
     Route: 065
     Dates: start: 20231018, end: 20231023

REACTIONS (1)
  - Atrial fibrillation [Fatal]

NARRATIVE: CASE EVENT DATE: 20231025
